FAERS Safety Report 18946669 (Version 2)
Quarter: 2021Q1

REPORT INFORMATION
  Report Type: Report from Study
  Country: TW (occurrence: TW)
  Receive Date: 20210226
  Receipt Date: 20210305
  Transmission Date: 20210420
  Serious: Yes (Hospitalization, Other)
  Sender: FDA-Public Use
  Company Number: TW-JNJFOC-A-NJ2020-207100

PATIENT
  Age: 82 Year
  Sex: Female

DRUGS (3)
  1. ILOPROST. [Suspect]
     Active Substance: ILOPROST
     Indication: PULMONARY ARTERIAL HYPERTENSION
     Dosage: 1 DF, Q4HR
     Route: 055
     Dates: start: 20160706
  2. ADEMPAS [Suspect]
     Active Substance: RIOCIGUAT
     Dosage: 1 DF, TID
     Route: 048
     Dates: start: 20200409
  3. ADEMPAS [Suspect]
     Active Substance: RIOCIGUAT
     Indication: PULMONARY ARTERIAL HYPERTENSION
     Dosage: 1 DF, TID
     Route: 048
     Dates: start: 20200409

REACTIONS (6)
  - Chest discomfort [Recovered/Resolved]
  - Injection site infection [Recovered/Resolved]
  - Hypotension [Recovered/Resolved]
  - Pulmonary hypertension [Recovered/Resolved]
  - Pancreatitis [Recovered/Resolved]
  - Abdominal pain [Recovered/Resolved]

NARRATIVE: CASE EVENT DATE: 202007
